FAERS Safety Report 12862699 (Version 1)
Quarter: 2016Q4

REPORT INFORMATION
  Report Type: Spontaneous
  Country: CH (occurrence: CH)
  Receive Date: 20161019
  Receipt Date: 20161019
  Transmission Date: 20170207
  Serious: Yes (Death, Hospitalization)
  Sender: FDA-Public Use
  Company Number: CH-TEVA-701384ISR

PATIENT
  Age: 76 Year
  Sex: Female
  Weight: 55 kg

DRUGS (11)
  1. SOTALOL MEPHA [Concomitant]
     Indication: PRODUCT USED FOR UNKNOWN INDICATION
     Dosage: 80 MILLIGRAM DAILY; MORE PRECISE DATA NOT AVAILABLE
     Route: 048
  2. SPIRIVA [Concomitant]
     Active Substance: TIOTROPIUM BROMIDE MONOHYDRATE
     Indication: PRODUCT USED FOR UNKNOWN INDICATION
     Dosage: 18 MICROGRAM DAILY; MORE PRECISE DATA NOT AVAILABLE
     Route: 055
  3. DAFALGAN [Concomitant]
     Active Substance: ACETAMINOPHEN
     Indication: PRODUCT USED FOR UNKNOWN INDICATION
     Dosage: 1 GRAM DAILY; MORE PRECISE DATA NOT AVAILABLE
     Route: 048
  4. RHINOMER [Concomitant]
     Indication: PRODUCT USED FOR UNKNOWN INDICATION
     Dosage: 2 DOSAGE FORMS DAILY; MORE PRECISE DATA NOT AVAILABLE
     Route: 045
  5. IRFEN [Suspect]
     Active Substance: IBUPROFEN
     Indication: ANALGESIC THERAPY
     Dosage: 1 DOSAGE FORMS DAILY; MORE PRECISE DATA NOT AVAILABLE
     Route: 048
  6. SINUPRET FORTE [Concomitant]
     Indication: PRODUCT USED FOR UNKNOWN INDICATION
     Dosage: 3 DOSAGE FORMS DAILY; MORE PRECISE DATA NOT AVAILABLE
     Route: 048
  7. EXFORGE [Concomitant]
     Active Substance: AMLODIPINE BESYLATE\VALSARTAN
     Indication: PRODUCT USED FOR UNKNOWN INDICATION
     Dosage: 1 DOSAGE FORMS DAILY; ALSO REPOTED AS: EXFORGE 5/80; MORE PRECISE DATA NOT AVAILABLE
     Route: 048
  8. MIRTAZAPIN MEPHA [Concomitant]
     Indication: PRODUCT USED FOR UNKNOWN INDICATION
     Dosage: 30 MILLIGRAM DAILY; MORE PRECISE DATA NOT AVAILABLE
     Route: 048
  9. MARCOUMAR [Suspect]
     Active Substance: PHENPROCOUMON
     Indication: ATRIAL FIBRILLATION
     Dosage: 1 DOSAGE FORMS DAILY;
     Route: 048
     Dates: start: 2010, end: 20160828
  10. VITAMIN D3 WILD [Concomitant]
     Indication: PRODUCT USED FOR UNKNOWN INDICATION
     Dosage: 5 GTT DAILY; MORE PRECISE DATA NOT AVAILABLE
     Route: 048
  11. METAMUCIL [Concomitant]
     Active Substance: PLANTAGO SEED
     Indication: PRODUCT USED FOR UNKNOWN INDICATION
     Dosage: 1 DOSAGE FORMS DAILY; MORE PRECISE DATA NOT AVAILABLE
     Route: 048

REACTIONS (1)
  - Cerebellar haemorrhage [Fatal]

NARRATIVE: CASE EVENT DATE: 20160828
